FAERS Safety Report 9205381 (Version 3)
Quarter: 2013Q2

REPORT INFORMATION
  Report Type: Spontaneous
  Country: AT (occurrence: AT)
  Receive Date: 20130402
  Receipt Date: 20130524
  Transmission Date: 20140414
  Serious: Yes (Hospitalization)
  Sender: FDA-Public Use
  Company Number: AT-AMGEN-AUTSP2013022542

PATIENT
  Age: 46 Year
  Sex: Female
  Weight: 83 kg

DRUGS (8)
  1. NEULASTA [Suspect]
     Indication: PRODUCT USED FOR UNKNOWN INDICATION
     Dosage: 6 MG, 1 X
     Route: 058
     Dates: start: 20130314, end: 20130314
  2. TAXOTERE [Concomitant]
     Indication: BREAST CANCER
     Dosage: 75 MG/M2, UNK
     Dates: start: 20130313
  3. HERCEPTIN [Concomitant]
     Indication: BREAST CANCER
     Dosage: 8 MG/KG, UNK
     Dates: start: 20130313
  4. MYOCET [Concomitant]
     Indication: BREAST CANCER
     Dosage: 75 MG/M2, UNK
     Dates: start: 20130313
  5. METOGASTRON [Concomitant]
     Indication: NAUSEA
     Dosage: 20 UNK, TID
     Route: 048
     Dates: start: 20130312
  6. GRANISETRON [Concomitant]
     Indication: VOMITING
     Dosage: 1 G, BID
     Route: 048
     Dates: start: 20130312
  7. AGOPTON [Concomitant]
     Indication: PROPHYLAXIS
     Dosage: 15 MG, QD
     Route: 048
     Dates: start: 20130312
  8. FORTECORTIN                        /00016001/ [Concomitant]
     Indication: ALLERGY PROPHYLAXIS
     Dosage: 8 MG, BID, 1 DAY PRIOR AND 2 DAYS AFTER CHEMOTHERAPY
     Route: 048

REACTIONS (4)
  - Febrile neutropenia [Recovered/Resolved]
  - C-reactive protein abnormal [Unknown]
  - Neutrophil count decreased [Unknown]
  - Diarrhoea [Unknown]
